FAERS Safety Report 9664323 (Version 1)
Quarter: 2013Q4

REPORT INFORMATION
  Report Type: Spontaneous
  Country: BR (occurrence: BR)
  Receive Date: 20131101
  Receipt Date: 20131101
  Transmission Date: 20140711
  Serious: Yes (Hospitalization)
  Sender: FDA-Public Use
  Company Number: BR-ROCHE-1297178

PATIENT
  Age: 66 Year
  Sex: Female
  Weight: 76.8 kg

DRUGS (8)
  1. ACTEMRA [Suspect]
     Indication: RHEUMATOID ARTHRITIS
     Route: 042
     Dates: start: 20130312
  2. PREDNISONE [Suspect]
     Indication: RHEUMATOID ARTHRITIS
     Route: 048
     Dates: end: 201008
  3. METHOTREXATE [Suspect]
     Indication: RHEUMATOID ARTHRITIS
     Route: 065
     Dates: start: 201008
  4. ENDRONAX [Concomitant]
     Indication: OSTEOPOROSIS
     Route: 048
     Dates: start: 201008
  5. OSCAL D [Concomitant]
     Indication: OSTEOPOROSIS
     Route: 048
     Dates: start: 201008
  6. ANCORON [Concomitant]
     Indication: ARRHYTHMIA
     Route: 048
     Dates: start: 2009
  7. OMEPRAZOLE [Concomitant]
     Indication: GASTRITIS
     Route: 048
     Dates: start: 201008
  8. LEVOID [Concomitant]
     Indication: HYPOTHYROIDISM
     Route: 048
     Dates: start: 20130619

REACTIONS (3)
  - Incision site abscess [Recovered/Resolved]
  - Fall [Unknown]
  - Femur fracture [Recovered/Resolved]
